FAERS Safety Report 21464722 (Version 1)
Quarter: 2022Q4

REPORT INFORMATION
  Report Type: Spontaneous
  Country: PL (occurrence: PL)
  Receive Date: 20221017
  Receipt Date: 20221017
  Transmission Date: 20230112
  Serious: Yes (Other)
  Sender: FDA-Public Use
  Company Number: PL-NOVARTISPH-NVSC2022PL229240

PATIENT
  Age: 13 Year
  Sex: Male
  Weight: 68.4 kg

DRUGS (9)
  1. TACROLIMUS [Suspect]
     Active Substance: TACROLIMUS
     Indication: Nephrotic syndrome
     Dosage: 2 MG, BID
     Route: 065
  2. TACROLIMUS [Suspect]
     Active Substance: TACROLIMUS
     Dosage: 2 MG (1 MG TWICE A DAY)
     Route: 065
  3. PREDNISONE [Suspect]
     Active Substance: PREDNISONE
     Indication: Nephrotic syndrome
     Dosage: UNK
     Route: 065
  4. LEVOTHYROXINE [Concomitant]
     Active Substance: LEVOTHYROXINE
     Indication: Hypothyroidism
     Dosage: 75 UG
     Route: 065
  5. VITAMIN D [Concomitant]
     Active Substance: VITAMIN D NOS
     Indication: Product used for unknown indication
     Dosage: UNK
     Route: 065
  6. CALCIUM [Concomitant]
     Active Substance: CALCIUM
     Indication: Product used for unknown indication
     Dosage: UNK
     Route: 065
  7. MAGNESIUM [Concomitant]
     Active Substance: MAGNESIUM
     Indication: Product used for unknown indication
     Dosage: UNK
     Route: 065
  8. POTASSIUM [Concomitant]
     Active Substance: POTASSIUM
     Indication: Product used for unknown indication
     Dosage: UNK
     Route: 065
  9. AMLODIPINE [Concomitant]
     Active Substance: AMLODIPINE BESYLATE
     Indication: Systolic hypertension
     Route: 065

REACTIONS (3)
  - Diabetes mellitus [Recovering/Resolving]
  - Drug level above therapeutic [Unknown]
  - Product use in unapproved indication [Unknown]
